FAERS Safety Report 10754729 (Version 2)
Quarter: 2015Q2

REPORT INFORMATION
  Report Type: Spontaneous
  Country: PT (occurrence: PT)
  Receive Date: 20150202
  Receipt Date: 20150423
  Transmission Date: 20150821
  Serious: Yes (Death, Hospitalization)
  Sender: FDA-Public Use
  Company Number: PT-SA-2015SA011979

PATIENT
  Age: 60 Year
  Sex: Male

DRUGS (1)
  1. FABRAZYME [Suspect]
     Active Substance: AGALSIDASE BETA
     Indication: FABRY^S DISEASE
     Route: 042
     Dates: start: 2014

REACTIONS (8)
  - Depression [Not Recovered/Not Resolved]
  - Death [Fatal]
  - Suicidal ideation [Unknown]
  - Abnormal behaviour [Unknown]
  - Pain in extremity [Unknown]
  - Weight decreased [Unknown]
  - Self injurious behaviour [Unknown]
  - Paraesthesia [Not Recovered/Not Resolved]
